FAERS Safety Report 12804719 (Version 1)
Quarter: 2016Q4

REPORT INFORMATION
  Report Type: Report from Study
  Country: US (occurrence: US)
  Receive Date: 20161003
  Receipt Date: 20161003
  Transmission Date: 20170207
  Serious: Yes (Other)
  Sender: FDA-Public Use
  Company Number: US-ASTRAZENECA-2015SF28207

PATIENT
  Sex: Female
  Weight: 67.1 kg

DRUGS (18)
  1. CELECOXIB. [Concomitant]
     Active Substance: CELECOXIB
     Indication: ARTHROPATHY
     Route: 048
  2. METHADONE [Concomitant]
     Active Substance: METHADONE HYDROCHLORIDE
     Indication: PAIN
     Dosage: 5-7 PILLS A DAY
     Route: 048
  3. MULTIVITAMIN [Concomitant]
     Active Substance: VITAMINS
  4. MAGNESIUM [Concomitant]
     Active Substance: MAGNESIUM
     Indication: PAIN
     Dosage: EVERY 3RD WEEKS
     Route: 042
  5. MOVANTIK [Suspect]
     Active Substance: NALOXEGOL OXALATE
     Indication: CONSTIPATION
     Dosage: EVERY 3RD DAY
     Route: 048
  6. VITAMIN B12 [Concomitant]
     Active Substance: CYANOCOBALAMIN
  7. FENTANYL. [Concomitant]
     Active Substance: FENTANYL
     Indication: PAIN
     Dosage: 12 UG PATCH FOR 3 DAYS THEN CHANGE
  8. MOVANTIK [Suspect]
     Active Substance: NALOXEGOL OXALATE
     Indication: CONSTIPATION
     Route: 048
  9. ATORVASTATIN [Concomitant]
     Active Substance: ATORVASTATIN
     Indication: BLOOD CHOLESTEROL ABNORMAL
     Route: 048
  10. POTASSIUM [Concomitant]
     Active Substance: POTASSIUM
  11. SEROQUEL [Suspect]
     Active Substance: QUETIAPINE FUMARATE
     Indication: AFFECTIVE DISORDER
     Route: 048
  12. LYRICA [Suspect]
     Active Substance: PREGABALIN
     Indication: COMPLEX REGIONAL PAIN SYNDROME
     Dosage: THREE TIMES A DAY, INCREASING THE DOSE GRADUALLY
     Route: 048
     Dates: start: 200805
  13. ALPRAZOLAM. [Concomitant]
     Active Substance: ALPRAZOLAM
     Indication: ANXIETY DISORDER
     Route: 048
  14. ALPRAZOLAM. [Concomitant]
     Active Substance: ALPRAZOLAM
     Indication: DEPRESSION
     Route: 048
  15. ALPRAZOLAM. [Concomitant]
     Active Substance: ALPRAZOLAM
     Indication: SUICIDAL IDEATION
     Route: 048
  16. DIAZEPAM. [Concomitant]
     Active Substance: DIAZEPAM
     Route: 048
  17. TORSEMIDE. [Concomitant]
     Active Substance: TORSEMIDE
     Route: 048
  18. VITAMIN B6 [Concomitant]
     Active Substance: PYRIDOXINE HYDROCHLORIDE

REACTIONS (3)
  - Complex regional pain syndrome [Unknown]
  - Weight increased [Unknown]
  - Constipation [Unknown]
